FAERS Safety Report 9107406 (Version 4)
Quarter: 2013Q2

REPORT INFORMATION
  Report Type: Spontaneous
  Country: US (occurrence: US)
  Receive Date: 20130221
  Receipt Date: 20130415
  Transmission Date: 20140414
  Serious: Yes (Other)
  Sender: FDA-Public Use
  Company Number: US-JNJFOC-20130207943

PATIENT
  Age: 58 Year
  Sex: Female
  Weight: 78.9 kg

DRUGS (9)
  1. STELARA [Suspect]
     Indication: PSORIASIS
     Route: 058
     Dates: start: 20121112, end: 20121112
  2. STELARA [Suspect]
     Indication: PSORIASIS
     Route: 058
     Dates: start: 20121015, end: 20121015
  3. PREMARIN [Concomitant]
     Indication: MENOPAUSE
     Route: 065
  4. DETROL LA [Concomitant]
     Indication: PRODUCT USED FOR UNKNOWN INDICATION
     Route: 065
  5. FOLIC ACID [Concomitant]
     Indication: PRODUCT USED FOR UNKNOWN INDICATION
     Route: 048
  6. CLOBETASOL [Concomitant]
     Indication: PSORIASIS
     Dosage: 0.05% APPLICATOR Q AM
     Route: 061
     Dates: start: 20111212
  7. ESTROGENS [Concomitant]
     Indication: HORMONE REPLACEMENT THERAPY
     Route: 048
  8. METHOTREXATE [Concomitant]
     Indication: PSORIASIS
     Route: 048
     Dates: start: 20101220, end: 20120327
  9. TOLTERODINE [Concomitant]
     Indication: POLLAKIURIA
     Route: 048

REACTIONS (2)
  - Vasculitis [Recovering/Resolving]
  - Skin haemorrhage [Recovering/Resolving]
